FAERS Safety Report 10077885 (Version 1)
Quarter: 2014Q2

REPORT INFORMATION
  Report Type: Spontaneous
  Country: PH (occurrence: PH)
  Receive Date: 20140415
  Receipt Date: 20140415
  Transmission Date: 20141212
  Serious: Yes (Other)
  Sender: FDA-Public Use
  Company Number: PH-UCBSA-117988

PATIENT
  Age: 58 Year
  Sex: Female

DRUGS (1)
  1. KEPPRA [Suspect]

REACTIONS (3)
  - Laceration [Unknown]
  - Dry skin [Unknown]
  - Adverse drug reaction [Unknown]
